FAERS Safety Report 6804312-3 (Version None)
Quarter: 2010Q2

REPORT INFORMATION
  Report Type: 
  Country: None (occurrence: None)
  Receive Date: 20100628
  Receipt Date: 20070308
  Transmission Date: 20101027
  Serious: No
  Sender: FDA-Public Use
  Company Number: US-PFIZER INC-2007007330

PATIENT
  Sex: Male

DRUGS (3)
  1. XALATAN [Suspect]
     Route: 047
     Dates: start: 20061201
  2. INSULIN [Concomitant]
     Indication: DIABETES MELLITUS
     Dates: start: 20061101
  3. ANTIHYPERTENSIVES [Concomitant]
     Indication: BLOOD PRESSURE
     Dates: start: 20061101

REACTIONS (1)
  - DRUG ADMINISTRATION ERROR [None]
